FAERS Safety Report 22879517 (Version 2)
Quarter: 2024Q2

REPORT INFORMATION
  Report Type: Spontaneous
  Country: IT (occurrence: IT)
  Receive Date: 20230829
  Receipt Date: 20240412
  Transmission Date: 20240716
  Serious: Yes (Other)
  Sender: FDA-Public Use
  Company Number: None

PATIENT
  Age: 69 Year
  Sex: Female

DRUGS (18)
  1. KEYTRUDA [Suspect]
     Active Substance: PEMBROLIZUMAB
     Indication: Lung adenocarcinoma
     Dosage: 200 MILLIGRAM, Q3W; STRENGTH: 4ML 25MG/ML (EACH VIAL CONTAINS 100MG)
     Route: 042
     Dates: start: 20230718
  2. CARBOPLATIN [Suspect]
     Active Substance: CARBOPLATIN
     Indication: Lung adenocarcinoma
     Dosage: 500 MILLIGRAM, Q3W; STRENGTH: 1FL 60ML (EACH VIAL CONTAINS 600MG)
     Route: 042
     Dates: start: 20230718
  3. PACLITAXEL [Suspect]
     Active Substance: PACLITAXEL
     Indication: Lung adenocarcinoma
     Dosage: 280 MILLIGRAM, Q3W; STRENGTH: 50ML 6MG/ML (EACH VIAL CONTAINS 300MG/50ML)
     Route: 042
     Dates: start: 20230718
  4. EZATEROS [Concomitant]
     Indication: Dyslipidaemia
     Dosage: EZATEROS*28CPR 10MG+10MG - 1 TABLET IN THE EVENING
     Route: 048
     Dates: start: 2022
  5. GRANISETRON [Concomitant]
     Active Substance: GRANISETRON
     Indication: Vomiting
     Dosage: GRANISETRON (PA) ADMINISTERED 3 MG PER PROTOCOL CARBO/TAX + PEMETREXED WITH REPETITIONS EVERY 21 DAY
     Route: 042
     Dates: start: 20230718
  6. GRANISETRON [Concomitant]
     Active Substance: GRANISETRON
     Indication: Chemotherapy side effect prophylaxis
  7. METOCLOPRAMIDE [Concomitant]
     Active Substance: METOCLOPRAMIDE
     Indication: Nausea
     Dosage: METOCLOPRAMIDE (PA) ADMINISTERED 10 MG PER CARBO/TAX + PEMETREXED PROTOCOL WITH REPETITIONS EVERY 21
     Route: 042
     Dates: start: 20230718
  8. HYDROCHLOROTHIAZIDE\VALSARTAN [Concomitant]
     Active Substance: HYDROCHLOROTHIAZIDE\VALSARTAN
     Indication: Hypertensive heart disease
     Dosage: COTAREG*28TABS RIV 160MG+12.5MG-1 TAB IN THE MORNING
     Route: 048
     Dates: start: 2022
  9. ASCRIPTIN [Concomitant]
     Active Substance: ASPIRIN
     Indication: Hypertensive heart disease
     Dosage: ASCRIPTIN*20CPR DIV300+80+70MG- 1 TAB AT 13:00
     Route: 048
     Dates: start: 2022
  10. CHLORPHENIRAMINE [Concomitant]
     Active Substance: CHLORPHENIRAMINE
     Indication: Chemotherapy side effect prophylaxis
     Dosage: CHLORPHENAMINE (PA) ADMINISTERED 10MG PER CARBO/TAX + PEMETREXED PROTOCOL WITH REPETITIONS EVERY 21
     Route: 042
     Dates: start: 20230718
  11. CHLORPHENIRAMINE [Concomitant]
     Active Substance: CHLORPHENIRAMINE
     Indication: Antiallergic therapy
  12. ORAMORPH SR SUSTAINED RELEASE [Concomitant]
     Active Substance: MORPHINE SULFATE
     Indication: Cancer pain
     Dosage: ORAMORPH*SCIR FL 100ML 2MG/ML: AS NEEDED IF EPISODES OF INTENSE PAIN 5 ML ? TO BE USED UP TO 4 TIMES
     Route: 048
     Dates: start: 20230719
  13. METFORMIN HYDROCHLORIDE [Concomitant]
     Active Substance: METFORMIN HYDROCHLORIDE
     Indication: Type 2 diabetes mellitus
     Dosage: METFORMINA 500 30CPR TEV - 1 TABLET AT LUNCH
     Route: 048
     Dates: start: 2022
  14. ESOMEPRAZOLE MAGNESIUM [Concomitant]
     Active Substance: ESOMEPRAZOLE MAGNESIUM
     Indication: Gastrooesophageal reflux disease
     Dosage: ESOMEPRAZOLE SDZ*28CPR GAS20MG- 1 TABLET IN THE MORNING
     Route: 048
     Dates: start: 2022
  15. NEBIVOLOL HYDROCHLORIDE [Concomitant]
     Active Substance: NEBIVOLOL HYDROCHLORIDE
     Indication: Hypertensive heart disease
     Dosage: 1LOBIVON*28CPR 5MG - 1 TABLET IN THE MORNING
     Route: 048
     Dates: start: 2022
  16. DEXAMETHASONE [Concomitant]
     Active Substance: DEXAMETHASONE
     Indication: Chemotherapy side effect prophylaxis
     Dosage: DESAMETASONE (PA) ADMINISTERED 8 MG PER CARBO/TAX + PEMETREXED PROTOCOL WITH REPETITIONS EVERY 21 DA
     Route: 042
     Dates: start: 20230718
  17. DEXAMETHASONE [Concomitant]
     Active Substance: DEXAMETHASONE
     Indication: Steroid therapy
  18. DEXAMETHASONE [Concomitant]
     Active Substance: DEXAMETHASONE
     Indication: Steroid therapy
     Dosage: SOLDESAM OS GTT 10 ML 0.2% - 32 DROPS/DAY IN THE
     Route: 048
     Dates: start: 20230719

REACTIONS (2)
  - Neutropenia [Recovered/Resolved]
  - Stomatitis [Recovered/Resolved]

NARRATIVE: CASE EVENT DATE: 20230808
